FAERS Safety Report 12646577 (Version 1)
Quarter: 2016Q3

REPORT INFORMATION
  Report Type: Spontaneous
  Country: US (occurrence: US)
  Receive Date: 20160812
  Receipt Date: 20160812
  Transmission Date: 20161109
  Serious: No
  Sender: FDA-Public Use
  Company Number: US-009507513-1608USA006060

PATIENT
  Age: 19 Year
  Sex: Female

DRUGS (3)
  1. FLUDROCORTISONE [Concomitant]
     Active Substance: FLUDROCORTISONE
     Indication: VIRILISM
     Dosage: 150 MICROGRAM, QD
  2. HEXADROL [Suspect]
     Active Substance: DEXAMETHASONE
     Indication: VIRILISM
     Dosage: 250 MICROGRAM,TWICE DAILY
     Route: 048
  3. FLUTAMIDE. [Concomitant]
     Active Substance: FLUTAMIDE
     Indication: VIRILISM
     Dosage: 250 MICROGRAM, BID
     Route: 048

REACTIONS (1)
  - Drug ineffective [Unknown]
